FAERS Safety Report 15080499 (Version 1)
Quarter: 2018Q2

REPORT INFORMATION
  Report Type: Spontaneous
  Country: US (occurrence: US)
  Receive Date: 20180628
  Receipt Date: 20180628
  Transmission Date: 20180711
  Serious: Yes (Hospitalization)
  Sender: FDA-Public Use
  Company Number: US-BRISTOL-MYERS SQUIBB COMPANY-BMS-2018-057961

PATIENT
  Sex: Female

DRUGS (2)
  1. YERVOY [Suspect]
     Active Substance: IPILIMUMAB
     Indication: NEUROENDOCRINE CARCINOMA
     Dosage: 254.40 MG, Q3WK
     Route: 042
     Dates: start: 201803
  2. OPDIVO [Suspect]
     Active Substance: NIVOLUMAB
     Indication: NEUROENDOCRINE CARCINOMA
     Dosage: 84.80 MG, Q3WK
     Route: 042
     Dates: start: 201803

REACTIONS (3)
  - Fatigue [Unknown]
  - Product use in unapproved indication [Unknown]
  - Diarrhoea [Unknown]
